FAERS Safety Report 19462566 (Version 1)
Quarter: 2021Q2

REPORT INFORMATION
  Report Type: Spontaneous
  Country: NL (occurrence: NL)
  Receive Date: 20210625
  Receipt Date: 20210625
  Transmission Date: 20210717
  Serious: Yes (Hospitalization)
  Sender: FDA-Public Use
  Company Number: NL-TEVA-2021-NL-1925208

PATIENT
  Sex: Female
  Weight: 37 kg

DRUGS (1)
  1. COTRIMOXAZOL 960 TABLET 160/800MG / BRAND NAME NOT SPECIFIED [Suspect]
     Active Substance: SULFAMETHOXAZOLE\TRIMETHOPRIM
     Indication: PROPHYLAXIS
     Dosage: 800 MILLIGRAM DAILY;
     Route: 065
     Dates: start: 202104, end: 20210529

REACTIONS (2)
  - Hypernatriuria [Recovered/Resolved]
  - Hyponatraemia [Recovered/Resolved]
